FAERS Safety Report 15298097 (Version 2)
Quarter: 2019Q3

REPORT INFORMATION
  Report Type: Spontaneous
  Country: CA (occurrence: CA)
  Receive Date: 20180820
  Receipt Date: 20190723
  Transmission Date: 20191004
  Serious: Yes (Other)
  Sender: FDA-Public Use
  Company Number: CA-ALLERGAN-1840536US

PATIENT
  Sex: Female

DRUGS (1)
  1. CITALOPRAM HYDROBROMIDE - BP [Suspect]
     Active Substance: CITALOPRAM HYDROBROMIDE
     Indication: PRODUCT USED FOR UNKNOWN INDICATION
     Dosage: 20 MG, UNK
     Route: 048
     Dates: start: 20171128

REACTIONS (6)
  - Muscle tightness [Unknown]
  - Anxiety [Unknown]
  - Serotonin syndrome [Unknown]
  - Dizziness [Unknown]
  - Bruxism [Unknown]
  - Tachycardia [Unknown]

NARRATIVE: CASE EVENT DATE: 20180326
